FAERS Safety Report 5671581-5 (Version None)
Quarter: 2008Q1

REPORT INFORMATION
  Report Type: 
  Country: None (occurrence: None)
  Receive Date: 20080313
  Receipt Date: 20080228
  Transmission Date: 20080703
  Serious: Yes (Hospitalization)
  Sender: FDA-Public Use
  Company Number: 2007PV000046

PATIENT
  Age: 64 Year
  Sex: Female

DRUGS (8)
  1. DEPOCYT [Suspect]
     Indication: CENTRAL NERVOUS SYSTEM LYMPHOMA
     Dosage: 50 MG;X4;
     Dates: start: 20070614, end: 20070927
  2. MABTHERA [Concomitant]
  3. CHLORAMINOPHEN-RITUXIMAB [Concomitant]
  4. CORTANCYL [Concomitant]
  5. TAHOR [Concomitant]
  6. AMILORIDE HYDROCHLORIDE [Concomitant]
  7. ALPRESS [Concomitant]
  8. MODOPAR [Concomitant]

REACTIONS (9)
  - CAUDA EQUINA SYNDROME [None]
  - DISEASE PROGRESSION [None]
  - DRUG TOXICITY [None]
  - FAECAL INCONTINENCE [None]
  - INFLAMMATION [None]
  - MOBILITY DECREASED [None]
  - NEUROTOXICITY [None]
  - PROCEDURAL COMPLICATION [None]
  - URINARY INCONTINENCE [None]
